FAERS Safety Report 18680492 (Version 1)
Quarter: 2020Q4

REPORT INFORMATION
  Report Type: Report from Study
  Country: JP (occurrence: JP)
  Receive Date: 20201230
  Receipt Date: 20201230
  Transmission Date: 20210114
  Serious: Yes (Hospitalization)
  Sender: FDA-Public Use
  Company Number: JP-ROCHE-2167608

PATIENT
  Age: 75 Year
  Sex: Female
  Weight: 50.8 kg

DRUGS (84)
  1. CARBOPLATIN. [Suspect]
     Active Substance: CARBOPLATIN
     Indication: MALIGNANT PERITONEAL NEOPLASM
     Dosage: DATE OF MOST RECENT DOSE OF CARBOPLATIN (450 MG) PRIOR TO EVENT ONSET (FIRST EPISODE OF PYELONEPHRIT
     Route: 042
     Dates: start: 20180511
  2. SOLACET F [Concomitant]
     Active Substance: CALCIUM CHLORIDE\POTASSIUM CHLORIDE\SODIUM ACETATE\SODIUM CHLORIDE
     Dates: start: 20180821, end: 20180821
  3. SOLACET F [Concomitant]
     Active Substance: CALCIUM CHLORIDE\POTASSIUM CHLORIDE\SODIUM ACETATE\SODIUM CHLORIDE
     Dates: start: 20180911, end: 20180911
  4. CALONAL [Concomitant]
     Active Substance: ACETAMINOPHEN
     Indication: ARTHRALGIA
  5. CALONAL [Concomitant]
     Active Substance: ACETAMINOPHEN
     Indication: HEADACHE
  6. KENEI G [Concomitant]
     Active Substance: GLYCERIN
     Indication: PREMEDICATION
     Dosage: ENEMA
     Dates: start: 20180724, end: 20180724
  7. ROCURONIUM [Concomitant]
     Active Substance: ROCURONIUM BROMIDE
     Indication: SURGERY
     Dates: start: 20180724, end: 20180724
  8. RESTAMIN [Concomitant]
     Active Substance: DIPHENHYDRAMINE
     Dates: start: 20180821, end: 20180821
  9. RESTAMIN [Concomitant]
     Active Substance: DIPHENHYDRAMINE
     Dates: start: 20181023, end: 20181023
  10. TRANEXAMIC ACID. [Concomitant]
     Active Substance: TRANEXAMIC ACID
     Indication: UPPER RESPIRATORY TRACT INFECTION
     Dates: start: 20181029, end: 20181103
  11. ASPARA-CA [Concomitant]
     Active Substance: CALCIUM ASPARTATE
     Indication: HYPOCALCAEMIA
  12. TAKECAB [Concomitant]
     Active Substance: VONOPRAZAN FUMARATE
     Indication: CHRONIC GASTRITIS
  13. ACELIO [Concomitant]
     Active Substance: ACETAMINOPHEN
     Indication: PROCEDURAL PAIN
     Dates: start: 20180724, end: 20180729
  14. REMIFENTANIL [Concomitant]
     Active Substance: REMIFENTANIL
     Indication: SURGERY
     Dates: start: 20180724, end: 20180724
  15. HEPARINOID [Concomitant]
     Active Substance: CHONDROITIN SULFATE (BOVINE)
     Indication: PRURITUS
     Dates: start: 20181025
  16. ORTEXER [Concomitant]
     Indication: STOMATITIS
     Dates: start: 20180818, end: 20180819
  17. MIDAZOLAM. [Concomitant]
     Active Substance: MIDAZOLAM
     Indication: SURGERY
     Dates: start: 20181011, end: 20181011
  18. BLINDED ATEZOLIZUMAB [Suspect]
     Active Substance: ATEZOLIZUMAB
     Indication: MALIGNANT PERITONEAL NEOPLASM
     Dosage: DATE OF MOST RECENT DOSE OF BLINDED ATEZOLIZUMAB PRIOR TO EVENT ONSET (FIRST EPISODE OF PYELONEPHRIT
     Route: 042
     Dates: start: 20180511
  19. LAC-B [Concomitant]
     Active Substance: BIFIDOBACTERIUM SPP.
     Indication: CHRONIC GASTRITIS
  20. LIXIANA [Concomitant]
     Active Substance: EDOXABAN TOSYLATE
     Indication: DEEP VEIN THROMBOSIS
     Dates: start: 20180412, end: 20180722
  21. LOXOPROFEN [Concomitant]
     Active Substance: LOXOPROFEN
     Indication: TUMOUR PAIN
     Dates: start: 20180406
  22. CALONAL [Concomitant]
     Active Substance: ACETAMINOPHEN
     Indication: ABDOMINAL PAIN
  23. VEEN-D [Concomitant]
     Active Substance: DEXTROSE
     Indication: PROPHYLAXIS
     Dates: start: 20180722, end: 20180723
  24. SOLDEM 1 [Concomitant]
     Active Substance: DEXTROSE\SODIUM CHLORIDE\SODIUM LACTATE
     Indication: PROPHYLAXIS
     Dates: start: 20180725, end: 20180725
  25. ACELIO [Concomitant]
     Active Substance: ACETAMINOPHEN
     Indication: PYELONEPHRITIS
     Dates: start: 20180808, end: 20180808
  26. ROPION [Concomitant]
     Active Substance: FLURBIPROFEN AXETIL
     Indication: PROPHYLAXIS
     Dates: start: 20180724, end: 20180724
  27. LASIX [Concomitant]
     Active Substance: FUROSEMIDE
     Indication: PROPHYLAXIS
     Dates: start: 20180725, end: 20180725
  28. ORTEXER [Concomitant]
     Indication: ORAL PAIN
     Route: 061
     Dates: start: 20180924, end: 20180925
  29. ROCURONIUM [Concomitant]
     Active Substance: ROCURONIUM BROMIDE
     Dates: start: 20180724, end: 20180724
  30. PACLITAXEL. [Suspect]
     Active Substance: PACLITAXEL
     Indication: MALIGNANT PERITONEAL NEOPLASM
     Dosage: DATE OF MOST RECENT DOSE OF PACLITAXEL (240 MG) PRIOR TO EVENT ONSET (FIRST EPISODE OF PYELONEPHRITI
     Route: 042
     Dates: start: 20180511
  31. SOLACET F [Concomitant]
     Active Substance: CALCIUM CHLORIDE\POTASSIUM CHLORIDE\SODIUM ACETATE\SODIUM CHLORIDE
     Dates: start: 20180724, end: 20180724
  32. LOXOPROFEN NA [Concomitant]
     Active Substance: LOXOPROFEN SODIUM
     Indication: ARTHRALGIA
  33. RILMAZAFONE [Concomitant]
     Active Substance: RILMAZAFONE
     Indication: INSOMNIA
     Dates: start: 20180511, end: 20190926
  34. LACTEC [Concomitant]
     Active Substance: CALCIUM CHLORIDE ANHYDROUS\POTASSIUM CHLORIDE\SODIUM CHLORIDE\SODIUM LACTATE
     Indication: PROPHYLAXIS
     Dates: start: 20180724, end: 20180724
  35. ACELIO [Concomitant]
     Active Substance: ACETAMINOPHEN
     Dates: start: 20180920, end: 20180924
  36. DIPRIVAN [Concomitant]
     Active Substance: PROPOFOL
     Indication: SURGERY
     Dates: start: 20180724, end: 20180724
  37. FENTANYL. [Concomitant]
     Active Substance: FENTANYL
     Dates: start: 20180725, end: 20180727
  38. SOLACET F [Concomitant]
     Active Substance: CALCIUM CHLORIDE\POTASSIUM CHLORIDE\SODIUM ACETATE\SODIUM CHLORIDE
     Dates: start: 20181023, end: 20181023
  39. ANAPEINE [Concomitant]
     Active Substance: ROPIVACAINE HYDROCHLORIDE
     Indication: SURGERY
     Dates: start: 20181011, end: 20181011
  40. SOSEGON [Concomitant]
     Active Substance: PENTAZOCINE
     Indication: SURGERY
     Dates: start: 20181011, end: 20181011
  41. OLANZAPINE OD [Concomitant]
     Active Substance: OLANZAPINE
     Indication: NAUSEA
     Dates: start: 20180914, end: 20180915
  42. GASTROM [Concomitant]
     Active Substance: ECABET SODIUM
     Indication: CHRONIC GASTRITIS
     Dates: end: 20190318
  43. EURAX [Concomitant]
     Active Substance: CROTAMITON
     Dates: start: 20180727, end: 20180727
  44. SOLACET F [Concomitant]
     Active Substance: CALCIUM CHLORIDE\POTASSIUM CHLORIDE\SODIUM ACETATE\SODIUM CHLORIDE
     Indication: PROPHYLAXIS
     Dosage: SURGERY
     Dates: start: 20180511
  45. HEPARINOID [Concomitant]
     Active Substance: CHONDROITIN SULFATE (BOVINE)
     Indication: DRY SKIN
     Dates: start: 20180727
  46. ALOXI [Concomitant]
     Active Substance: PALONOSETRON HYDROCHLORIDE
     Dates: start: 20180911, end: 20180911
  47. RANITIDINE. [Concomitant]
     Active Substance: RANITIDINE
     Dates: start: 20180821, end: 20180821
  48. DEXART [Concomitant]
     Active Substance: DEXAMETHASONE SODIUM PHOSPHATE
     Route: 042
     Dates: start: 20181023, end: 20181023
  49. FILGRASTIM BS [Concomitant]
     Active Substance: FILGRASTIM
     Indication: NEUTROPHIL COUNT DECREASED
     Dates: start: 20180903, end: 20180903
  50. NAUZELIN [Concomitant]
     Active Substance: DOMPERIDONE
     Indication: NAUSEA
     Dates: start: 20180914
  51. SOLACET F [Concomitant]
     Active Substance: CALCIUM CHLORIDE\POTASSIUM CHLORIDE\SODIUM ACETATE\SODIUM CHLORIDE
     Indication: SURGERY
     Dates: start: 20181011, end: 20181011
  52. XYLOCAINE [Concomitant]
     Active Substance: LIDOCAINE HYDROCHLORIDE
     Dates: start: 20181022, end: 20181022
  53. MAGNESIUM HYDROXIDE. [Concomitant]
     Active Substance: MAGNESIUM HYDROXIDE
     Indication: CONSTIPATION PROPHYLAXIS
     Dates: start: 20180407
  54. REBAMIPIDE [Concomitant]
     Active Substance: REBAMIPIDE
     Indication: CHRONIC GASTRITIS
     Dates: start: 20180406, end: 201805
  55. VOLUVEN [Concomitant]
     Active Substance: HYDROXYETHYL STARCH 130/0.4
     Indication: SURGERY
     Dates: start: 20180724, end: 20180724
  56. NEOSYNESIN [PHENYLEPHRINE HYDROCHLORIDE] [Concomitant]
     Indication: SURGERY
     Dates: start: 20180724, end: 20180724
  57. RANITIDINE. [Concomitant]
     Active Substance: RANITIDINE
     Dates: start: 20181023, end: 20181023
  58. THIATON [Concomitant]
     Active Substance: TIQUIZIUM BROMIDE
     Indication: CHRONIC GASTRITIS
  59. GASLON [Concomitant]
     Active Substance: IRSOGLADINE MALEATE
     Indication: CHRONIC GASTRITIS
     Dates: start: 20181203
  60. LIXIANA [Concomitant]
     Active Substance: EDOXABAN TOSYLATE
     Dates: start: 20180731
  61. REBAMIPIDE [Concomitant]
     Active Substance: REBAMIPIDE
     Dates: start: 20180802, end: 20180805
  62. VITAMEDIN (JAPAN) [Concomitant]
     Indication: VITAMIN SUPPLEMENTATION
     Dates: start: 20180722, end: 20180724
  63. BRIDION [Concomitant]
     Active Substance: SUGAMMADEX
     Indication: SURGERY
     Dates: start: 20180724, end: 20180724
  64. IRRADIATED RED BLOOD CELLS-LEUKOCYTES REDUCED [Concomitant]
     Active Substance: HUMAN RED BLOOD CELL
     Indication: SURGERY
     Dates: start: 20180724, end: 20180724
  65. PHENYLEPHRINE HYDROCHLORIDE. [Concomitant]
     Active Substance: PHENYLEPHRINE HYDROCHLORIDE
     Indication: SURGERY
     Dates: start: 20180724, end: 20180724
  66. WHITE PETROLATUM [Concomitant]
     Active Substance: PETROLATUM
     Indication: EPIDERMOLYSIS
     Dates: start: 20180817
  67. RESTAMIN [Concomitant]
     Active Substance: DIPHENHYDRAMINE
     Dates: start: 20180911, end: 20180911
  68. RANITIDINE. [Concomitant]
     Active Substance: RANITIDINE
     Dates: start: 20180911, end: 20180911
  69. DEXART [Concomitant]
     Active Substance: DEXAMETHASONE SODIUM PHOSPHATE
     Route: 042
     Dates: start: 20180821, end: 20180821
  70. SP TROCHES [Concomitant]
     Active Substance: DEQUALINIUM CHLORIDE
     Indication: UPPER RESPIRATORY TRACT INFECTION
     Dates: start: 20181029
  71. BEVACIZUMAB. [Suspect]
     Active Substance: BEVACIZUMAB
     Indication: MALIGNANT PERITONEAL NEOPLASM
     Dosage: DATE OF MOST RECENT DOSE OF BEVACIZUMAB (800 MG) PRIOR TO EVENT ONSET (EPISODES OF PYELONEPHRITIS):
     Route: 042
     Dates: start: 20180511
  72. LOXOPROFEN [Concomitant]
     Active Substance: LOXOPROFEN
     Indication: PROCEDURAL PAIN
     Dosage: POSTOPERATIVE PAIN
     Dates: start: 20180802, end: 20180805
  73. EURAX [Concomitant]
     Active Substance: CROTAMITON
     Indication: PRURITUS
     Dates: start: 20180410
  74. CALONAL [Concomitant]
     Active Substance: ACETAMINOPHEN
     Indication: MYALGIA
     Dates: start: 20180527
  75. LOXOPROFEN NA [Concomitant]
     Active Substance: LOXOPROFEN SODIUM
     Indication: MYALGIA
     Dates: start: 20180604, end: 20181116
  76. LYRICA [Concomitant]
     Active Substance: PREGABALIN
     Indication: PERIPHERAL SENSORY NEUROPATHY
     Dates: start: 20180621
  77. FLUMARIN (JAPAN) [Concomitant]
     Indication: PROPHYLAXIS
     Dates: start: 20180724, end: 20180726
  78. EPHEDRINE. [Concomitant]
     Active Substance: EPHEDRINE
     Indication: SURGERY
     Dates: start: 20180724, end: 20180724
  79. FENTANYL. [Concomitant]
     Active Substance: FENTANYL
     Indication: SURGERY
     Dates: start: 20180724, end: 20180724
  80. ALOXI [Concomitant]
     Active Substance: PALONOSETRON HYDROCHLORIDE
     Dates: start: 20180821, end: 20180821
  81. ALOXI [Concomitant]
     Active Substance: PALONOSETRON HYDROCHLORIDE
     Dates: start: 20181023, end: 20181023
  82. DEXART [Concomitant]
     Active Substance: DEXAMETHASONE SODIUM PHOSPHATE
     Route: 042
     Dates: start: 20180911, end: 20180911
  83. MAGNESIUM SULFATE. [Concomitant]
     Active Substance: MAGNESIUM SULFATE
     Indication: HYPOMAGNESAEMIA
     Dates: start: 20181114, end: 20181118
  84. XYLOCAINE [Concomitant]
     Active Substance: LIDOCAINE HYDROCHLORIDE
     Dates: start: 20181022, end: 20181022

REACTIONS (4)
  - Pyelonephritis [Recovered/Resolved]
  - Pyrexia [Recovered/Resolved]
  - Impaired healing [Recovered/Resolved]
  - Hypothyroidism [Recovering/Resolving]

NARRATIVE: CASE EVENT DATE: 20180808
